FAERS Safety Report 17089693 (Version 7)
Quarter: 2020Q3

REPORT INFORMATION
  Report Type: Report from Study
  Country: FR (occurrence: FR)
  Receive Date: 20191128
  Receipt Date: 20200708
  Transmission Date: 20201102
  Serious: Yes (Hospitalization, Other)
  Sender: FDA-Public Use
  Company Number: NVSC2019FR032778

PATIENT
  Age: 71 Year
  Weight: 71 kg

DRUGS (7)
  1. VORICONAZOLE. [Concomitant]
     Active Substance: VORICONAZOLE
     Indication: ASPERGILLUS INFECTION
     Dosage: 400 MG, QD
     Route: 048
     Dates: start: 20191029, end: 20191030
  2. ELTROMBOPAG [Suspect]
     Active Substance: ELTROMBOPAG
     Indication: ACUTE MYELOID LEUKAEMIA
     Dosage: 200 MG, QD
     Route: 048
     Dates: start: 20191012, end: 20191031
  3. DAUNORUBICIN [Concomitant]
     Active Substance: DAUNORUBICIN
     Indication: ACUTE MYELOID LEUKAEMIA
     Dosage: 105 MG, QD
     Route: 042
     Dates: start: 20190924, end: 20190926
  4. LOMUSTINE. [Concomitant]
     Active Substance: LOMUSTINE
     Indication: ACUTE MYELOID LEUKAEMIA
     Dosage: 360 MG, QD
     Route: 048
     Dates: start: 20190924, end: 20190924
  5. CYTARABINE. [Concomitant]
     Active Substance: CYTARABINE
     Indication: ACUTE MYELOID LEUKAEMIA
     Dosage: 180 MG, QD
     Route: 042
     Dates: start: 20190924, end: 20190930
  6. COLCHICINE. [Concomitant]
     Active Substance: COLCHICINE
     Indication: GOUT
     Dosage: 2 MG, QD
     Route: 048
     Dates: start: 20190923, end: 20190928
  7. PANTOPRAZOLE [Concomitant]
     Active Substance: PANTOPRAZOLE
     Indication: GASTRITIS PROPHYLAXIS
     Dosage: 40 MG, QD
     Route: 048
     Dates: start: 20190918, end: 20191101

REACTIONS (4)
  - Jaundice cholestatic [Recovered/Resolved]
  - Hepatocellular injury [Recovered/Resolved]
  - Mucormycosis [Recovered/Resolved with Sequelae]
  - Pleural effusion [Recovered/Resolved]

NARRATIVE: CASE EVENT DATE: 20191022
